FAERS Safety Report 6842431-6 (Version None)
Quarter: 2010Q3

REPORT INFORMATION
  Report Type: 
  Country: None (occurrence: None)
  Receive Date: 20100714
  Receipt Date: 20070730
  Transmission Date: 20110219
  Serious: No
  Sender: FDA-Public Use
  Company Number: US-PFIZER INC-2007063699

PATIENT
  Sex: Female
  Weight: 53.636 kg

DRUGS (7)
  1. CHANTIX [Suspect]
     Indication: SMOKING CESSATION THERAPY
     Dates: start: 20060101
  2. DEPAKOTE [Concomitant]
  3. CYMBALTA [Concomitant]
  4. XANAX [Concomitant]
  5. KLONOPIN [Concomitant]
  6. CRESTOR [Concomitant]
  7. DESYREL [Concomitant]

REACTIONS (1)
  - NAUSEA [None]
